FAERS Safety Report 11227918 (Version 1)
Quarter: 2015Q2

REPORT INFORMATION
  Report Type: Spontaneous
  Country: BE (occurrence: None)
  Receive Date: 20150626
  Receipt Date: 20150626
  Transmission Date: 20150821
  Serious: Yes (Death, Other)
  Sender: FDA-Public Use
  Company Number: K201414134

PATIENT
  Age: 67 Year
  Sex: Male

DRUGS (8)
  1. EMTRICITABINE [Suspect]
     Active Substance: EMTRICITABINE
     Indication: HIV INFECTION
  2. CLARITHROMYCIN. [Concomitant]
     Active Substance: CLARITHROMYCIN
  3. TENOFOVIR DISOPROXIL FUMARATE [Suspect]
     Active Substance: TENOFOVIR DISOPROXIL FUMARATE
     Indication: HIV INFECTION
  4. ABACAVIR (ABACAVIR SULPHATE) UNKNOWN [Suspect]
     Active Substance: ABACAVIR
     Indication: HIV INFECTION
  5. LOPINAVIRUM + RITONAVIRUM [Suspect]
     Active Substance: LOPINAVIR\RITONAVIR
     Indication: HIV INFECTION
  6. METHYLPREDNISOLONE. [Concomitant]
     Active Substance: METHYLPREDNISOLONE
  7. LAMIVUDINE (LAMIVUDINE) UNKNOWN [Suspect]
     Active Substance: LAMIVUDINE
     Indication: HIV INFECTION
  8. ETHAMBUTOL [Concomitant]
     Active Substance: ETHAMBUTOL HYDROCHLORIDE

REACTIONS (20)
  - Tubulointerstitial nephritis [None]
  - Multi-organ failure [None]
  - Pulmonary infarction [None]
  - Toxicity to various agents [None]
  - Immune reconstitution inflammatory syndrome [None]
  - Acute kidney injury [None]
  - Cytomegalovirus colitis [None]
  - Abscess [None]
  - Aspergillus infection [None]
  - Haemorrhagic infarction [None]
  - Mycobacterium avium complex infection [None]
  - Pseudomonas infection [None]
  - Pericardial effusion [None]
  - Lung infection [None]
  - Nephropathy [None]
  - Renal tubular necrosis [None]
  - Enterococcal infection [None]
  - Dialysis [None]
  - Scar [None]
  - Adrenal atrophy [None]
